FAERS Safety Report 23326091 (Version 1)
Quarter: 2023Q4

REPORT INFORMATION
  Report Type: Spontaneous
  Country: GR (occurrence: GR)
  Receive Date: 20231221
  Receipt Date: 20231221
  Transmission Date: 20240109
  Serious: Yes (Other)
  Sender: FDA-Public Use
  Company Number: GR-PFIZER INC-2017454089

PATIENT
  Age: 33 Year
  Sex: Female

DRUGS (7)
  1. METHOTREXATE SODIUM [Suspect]
     Active Substance: METHOTREXATE SODIUM
     Indication: Rash
     Dosage: UNK
     Route: 048
  2. METHOTREXATE SODIUM [Suspect]
     Active Substance: METHOTREXATE SODIUM
     Indication: Arthritis
     Dosage: UNK
     Route: 058
  3. MEDROL [Suspect]
     Active Substance: METHYLPREDNISOLONE
     Dosage: 8 MG, DAILY
  4. MEDROL [Suspect]
     Active Substance: METHYLPREDNISOLONE
     Dosage: 4/8 MG ALTERNATE
  5. MEDROL [Suspect]
     Active Substance: METHYLPREDNISOLONE
     Dosage: 2 G
     Route: 042
  6. PREDNISONE [Suspect]
     Active Substance: PREDNISONE
     Dosage: 30 MG, DAILY
     Route: 048
  7. PREDNISONE [Suspect]
     Active Substance: PREDNISONE
     Dosage: 7.5 MG, DAILY
     Route: 048

REACTIONS (8)
  - Systemic lupus erythematosus [Unknown]
  - Drug intolerance [Unknown]
  - Gastrointestinal disorder [Unknown]
  - Alopecia [Unknown]
  - Disease recurrence [Unknown]
  - Lymphopenia [Unknown]
  - Abdominal discomfort [Unknown]
  - Condition aggravated [Unknown]

NARRATIVE: CASE EVENT DATE: 20160201
